FAERS Safety Report 22063411 (Version 2)
Quarter: 2023Q1

REPORT INFORMATION
  Report Type: Report from Study
  Country: CA (occurrence: CA)
  Receive Date: 20230306
  Receipt Date: 20230317
  Transmission Date: 20230418
  Serious: Yes (Other)
  Sender: FDA-Public Use
  Company Number: CA-ABBVIE-4322983

PATIENT
  Sex: Female

DRUGS (2)
  1. RINVOQ [Suspect]
     Active Substance: UPADACITINIB
     Indication: Ankylosing spondylitis
     Dosage: FORM STRENGTH: 15MG?LAST ADMIN DATE: FEB 2023
     Route: 048
     Dates: start: 20230214
  2. RINVOQ [Suspect]
     Active Substance: UPADACITINIB
     Indication: Ankylosing spondylitis
     Dosage: FORM STRENGTH: 15MG?FIRST ADMIN DATE: FEB 2023
     Route: 048

REACTIONS (26)
  - Loss of consciousness [Unknown]
  - Abdominal pain [Unknown]
  - Haematochezia [Unknown]
  - Bone pain [Not Recovered/Not Resolved]
  - Skin warm [Unknown]
  - Tendon disorder [Unknown]
  - Vomiting [Not Recovered/Not Resolved]
  - Dyspnoea [Unknown]
  - Breast pain [Unknown]
  - Pain of skin [Unknown]
  - Ehlers-Danlos syndrome [Unknown]
  - Pain [Unknown]
  - Choking [Unknown]
  - Gastrointestinal disorder [Unknown]
  - Ligament disorder [Unknown]
  - Muscle strain [Unknown]
  - Nerve injury [Unknown]
  - Neuropathy peripheral [Unknown]
  - Constipation [Unknown]
  - Malaise [Unknown]
  - Haemorrhoids [Unknown]
  - Scar [Unknown]
  - Adverse food reaction [Unknown]
  - Sensitive skin [Unknown]
  - Alopecia [Unknown]
  - Spinal cord neoplasm [Unknown]
